FAERS Safety Report 6922975-9 (Version None)
Quarter: 2010Q3

REPORT INFORMATION
  Report Type: 
  Country: None (occurrence: None)
  Receive Date: 20100813
  Receipt Date: 20100810
  Transmission Date: 20110219
  Serious: Yes (Disabling)
  Sender: FDA-Public Use
  Company Number: DE-SANOFI-AVENTIS-2010SA047350

PATIENT
  Age: 51 Year
  Sex: Male

DRUGS (1)
  1. MULTAQ [Suspect]
     Route: 065

REACTIONS (1)
  - RESUSCITATION [None]
